FAERS Safety Report 6551082-2 (Version None)
Quarter: 2010Q1

REPORT INFORMATION
  Report Type: 
  Country: None (occurrence: None)
  Receive Date: 20100121
  Receipt Date: 20100111
  Transmission Date: 20100710
  Serious: Yes (Death)
  Sender: FDA-Public Use
  Company Number: 004583

PATIENT
  Age: 21 Year
  Sex: Female

DRUGS (11)
  1. ALPRAZOLAM [Suspect]
  2. ACETAMINOPHEN AND HYDROCODONE BITARTRATE [Suspect]
  3. ACETAMINOPHEN AND OXYCODONE HCL [Suspect]
  4. ACETAMINOPHEN- PROPOXYPHENE HCL TAB [Suspect]
  5. QUETIAPINE [Suspect]
  6. OXCARBAZEPINE [Suspect]
  7. LAMOTRIGINE [Suspect]
  8. SERTRALINE HCL [Suspect]
  9. PHENOBARBITAL [Concomitant]
  10. ZOLPIDEM [Concomitant]
  11. LORAZEPAM [Concomitant]

REACTIONS (1)
  - COMPLETED SUICIDE [None]
